FAERS Safety Report 9400053 (Version 2)
Quarter: 2013Q3

REPORT INFORMATION
  Report Type: Spontaneous
  Country: US (occurrence: US)
  Receive Date: 20130715
  Receipt Date: 20130715
  Transmission Date: 20140515
  Serious: Yes (Death)
  Sender: FDA-Public Use
  Company Number: US-TEVA-401311USA

PATIENT
  Age: 68 Year
  Sex: Male
  Weight: 30.87 kg

DRUGS (1)
  1. SYNRIBO [Suspect]
     Indication: CHRONIC MYELOID LEUKAEMIA
     Dates: start: 20130422

REACTIONS (3)
  - Blast crisis in myelogenous leukaemia [Fatal]
  - Dysgraphia [Unknown]
  - Off label use [Unknown]
